FAERS Safety Report 11213535 (Version 1)
Quarter: 2015Q2

REPORT INFORMATION
  Report Type: Report from Study
  Country: US (occurrence: US)
  Receive Date: 20150623
  Receipt Date: 20150623
  Transmission Date: 20150821
  Serious: Yes (Hospitalization)
  Sender: FDA-Public Use
  Company Number: PHHO2012US014289

PATIENT
  Age: 30 Year
  Sex: Male
  Weight: 95.87 kg

DRUGS (7)
  1. MARINOL [Concomitant]
     Active Substance: DRONABINOL
     Indication: PRODUCT USED FOR UNKNOWN INDICATION
     Dosage: 10 MG, BID
     Route: 048
     Dates: start: 20120405
  2. LISINOPRIL. [Concomitant]
     Active Substance: LISINOPRIL
     Indication: HYPERTENSION
     Dosage: 20 MG, QD
     Route: 048
     Dates: start: 20120217
  3. AVASTIN [Suspect]
     Active Substance: BEVACIZUMAB
     Indication: MENINGIOMA
     Dosage: 1035 MG, UNK
     Route: 042
     Dates: start: 20111129
  4. PROTONIX [Concomitant]
     Active Substance: PANTOPRAZOLE SODIUM
     Indication: ABDOMINAL PAIN
     Dosage: 40 MG, QD
     Route: 048
     Dates: start: 20120127
  5. AFINITOR [Suspect]
     Active Substance: EVEROLIMUS
     Indication: MENINGIOMA
     Dosage: 5 MG, UNK
     Route: 048
     Dates: start: 20111129
  6. AMLODIPINE [Concomitant]
     Active Substance: AMLODIPINE BESYLATE
     Indication: HYPERTENSION
     Dosage: 5 MG, QD
     Route: 048
     Dates: start: 20120410
  7. IBUPROFEN. [Concomitant]
     Active Substance: IBUPROFEN
     Indication: BACK PAIN
     Dosage: 800 MG, PRN
     Route: 048
     Dates: start: 20111128

REACTIONS (1)
  - Colitis [Recovered/Resolved]

NARRATIVE: CASE EVENT DATE: 20120930
